FAERS Safety Report 26122968 (Version 1)
Quarter: 2025Q4

REPORT INFORMATION
  Report Type: Spontaneous
  Country: AE (occurrence: AE)
  Receive Date: 20251204
  Receipt Date: 20251204
  Transmission Date: 20260117
  Serious: Yes (Death, Hospitalization)
  Sender: PFIZER
  Company Number: AE-PFIZER INC-PV202500140897

PATIENT
  Age: 73 Year
  Sex: Female

DRUGS (1)
  1. IBRANCE [Suspect]
     Active Substance: PALBOCICLIB
     Dosage: 125 MG, 1X/DAY, FOR 21 DAYS ON FOLLOWED BY 7 DAYS OFF
     Dates: start: 202505

REACTIONS (3)
  - Dyspnoea [Fatal]
  - Metastases to lung [Fatal]
  - Malignant neoplasm progression [Fatal]
